FAERS Safety Report 14267506 (Version 1)
Quarter: 2017Q4

REPORT INFORMATION
  Report Type: Spontaneous
  Country: US (occurrence: US)
  Receive Date: 20171209
  Receipt Date: 20171209
  Transmission Date: 20180321
  Serious: Yes (Life-Threatening, Disabling, Other)
  Sender: FDA-Public Use
  Company Number: None

PATIENT
  Age: 66 Year
  Sex: Male
  Weight: 108 kg

DRUGS (3)
  1. GENERIC ATORVASTATIN [Concomitant]
  2. RAPAFLO [Concomitant]
     Active Substance: SILODOSIN
  3. FINASTERIDE TABLETS, USP 5 MG (ATLLC) (FINASTERIDE) [Suspect]
     Active Substance: FINASTERIDE
     Indication: PROSTATITIS
     Dosage: ?          QUANTITY:90 TABLET(S); AT BEDTIME ORAL?
     Route: 048
     Dates: start: 20171208, end: 20171209

REACTIONS (2)
  - Vertigo [None]
  - Malaise [None]

NARRATIVE: CASE EVENT DATE: 20171209
